FAERS Safety Report 16128937 (Version 1)
Quarter: 2019Q1

REPORT INFORMATION
  Report Type: Report from Study
  Country: US (occurrence: US)
  Receive Date: 20190328
  Receipt Date: 20190328
  Transmission Date: 20190418
  Serious: Yes (Hospitalization, Other)
  Sender: FDA-Public Use
  Company Number: US-JNJFOC-20190233194

PATIENT
  Sex: Male

DRUGS (20)
  1. CHLORTHALIDONE. [Concomitant]
     Active Substance: CHLORTHALIDONE
  2. ALLOPURINOL. [Concomitant]
     Active Substance: ALLOPURINOL
  3. VENCLEXTA [Concomitant]
     Active Substance: VENETOCLAX
     Route: 048
  4. LISINOPRIL. [Concomitant]
     Active Substance: LISINOPRIL
  5. POTASSIUM CHLORIDE. [Concomitant]
     Active Substance: POTASSIUM CHLORIDE
     Route: 048
  6. VENCLEXTA [Concomitant]
     Active Substance: VENETOCLAX
     Route: 048
  7. METOPROLOL SUCCINATE. [Concomitant]
     Active Substance: METOPROLOL SUCCINATE
     Route: 048
  8. VENCLEXTA [Concomitant]
     Active Substance: VENETOCLAX
     Route: 048
  9. IMBRUVICA [Suspect]
     Active Substance: IBRUTINIB
     Indication: B-CELL SMALL LYMPHOCYTIC LYMPHOMA STAGE IV
     Route: 048
     Dates: start: 20181110
  10. ASPIRIN 81 [Concomitant]
     Active Substance: ASPIRIN
     Route: 048
  11. CORAL CALCIUM [Concomitant]
     Active Substance: DIETARY SUPPLEMENT
     Route: 048
  12. MULTIVITAMINS W/MINERALS [Concomitant]
     Active Substance: MINERALS\VITAMINS
     Route: 048
  13. ONDANSETRON HCL [Concomitant]
     Active Substance: ONDANSETRON HYDROCHLORIDE
     Indication: NAUSEA
     Route: 048
  14. VENCLEXTA [Concomitant]
     Active Substance: VENETOCLAX
     Route: 048
  15. ATORVASTATIN [Concomitant]
     Active Substance: ATORVASTATIN
     Indication: BLOOD CHOLESTEROL
     Route: 048
  16. IMBRUVICA [Suspect]
     Active Substance: IBRUTINIB
     Indication: B-CELL SMALL LYMPHOCYTIC LYMPHOMA STAGE IV
     Route: 048
     Dates: start: 20181112, end: 201901
  17. FUROSEMIDE. [Concomitant]
     Active Substance: FUROSEMIDE
     Route: 048
  18. ONDANSETRON HCL [Concomitant]
     Active Substance: ONDANSETRON HYDROCHLORIDE
     Indication: VOMITING
     Route: 048
  19. CORAL CALCIUM [Concomitant]
     Active Substance: DIETARY SUPPLEMENT
     Route: 048
  20. CORAL CALCIUM [Concomitant]
     Active Substance: DIETARY SUPPLEMENT
     Route: 048

REACTIONS (6)
  - Spinal osteoarthritis [Unknown]
  - Cardiac failure congestive [Recovered/Resolved]
  - Pericardial effusion [Unknown]
  - Pruritus [Unknown]
  - Cardiac tamponade [Unknown]
  - Aortic stenosis [Unknown]
